FAERS Safety Report 6660207-X (Version None)
Quarter: 2010Q1

REPORT INFORMATION
  Report Type: 
  Country: None (occurrence: None)
  Receive Date: 20100331
  Receipt Date: 20100315
  Transmission Date: 20100710
  Serious: No
  Sender: FDA-Public Use
  Company Number: 2009BI026837

PATIENT
  Sex: Female

DRUGS (1)
  1. TYSABRI [Suspect]
     Indication: MULTIPLE SCLEROSIS
     Route: 042
     Dates: start: 20070220

REACTIONS (7)
  - FATIGUE [None]
  - HYPERSENSITIVITY [None]
  - LIP SWELLING [None]
  - OESOPHAGITIS [None]
  - SWELLING FACE [None]
  - URINARY TRACT INFECTION [None]
  - URTICARIA [None]
